FAERS Safety Report 19912289 (Version 1)
Quarter: 2021Q4

REPORT INFORMATION
  Report Type: Spontaneous
  Country: US (occurrence: US)
  Receive Date: 20211002
  Receipt Date: 20211002
  Transmission Date: 20220303
  Serious: Yes (unspecified)
  Sender: FDA-Public Use
  Company Number: None

PATIENT
  Age: 64 Year
  Sex: Male
  Weight: 81 kg

DRUGS (1)
  1. LOTRIMIN ANTIFUNGAL (MICONAZOLE NITRATE) [Suspect]
     Active Substance: MICONAZOLE NITRATE
     Indication: Pruritus
     Dosage: ?          QUANTITY:4 SPRAY(S);
     Route: 061
     Dates: start: 20190614, end: 20210505

REACTIONS (3)
  - Erythema [None]
  - Skin irritation [None]
  - Dizziness [None]

NARRATIVE: CASE EVENT DATE: 20190702
